FAERS Safety Report 9114343 (Version 1)
Quarter: 2013Q1

REPORT INFORMATION
  Report Type: Spontaneous
  Country: BR (occurrence: BR)
  Receive Date: 20130208
  Receipt Date: 20130208
  Transmission Date: 20140127
  Serious: Yes (Life-Threatening)
  Sender: FDA-Public Use
  Company Number: BR-ROCHE-1186954

PATIENT
  Sex: Male
  Weight: 70 kg

DRUGS (8)
  1. PEGASYS [Suspect]
     Indication: HEPATITIS C
     Route: 042
  2. RIBAVIRIN [Suspect]
     Indication: HEPATITIS C
     Route: 065
  3. RIBAVIRIN [Suspect]
     Route: 065
     Dates: start: 20121012
  4. VICTRELIS [Suspect]
     Indication: HEPATITIS C
     Route: 048
     Dates: start: 20120109
  5. PEGINTRON [Concomitant]
     Indication: HEPATITIS C
     Route: 058
     Dates: start: 20121012
  6. CAPTOPRIL [Concomitant]
     Indication: HYPERTENSION
     Route: 065
  7. CITALOPRAM [Concomitant]
     Indication: INSOMNIA
     Route: 065
  8. CLONAZEPAM [Concomitant]
     Indication: INSOMNIA
     Route: 065

REACTIONS (7)
  - Viral load increased [Recovering/Resolving]
  - Insomnia [Recovering/Resolving]
  - Diarrhoea [Recovering/Resolving]
  - Diaphragmalgia [Recovering/Resolving]
  - Red blood cell count decreased [Recovering/Resolving]
  - Hypertension [Recovering/Resolving]
  - Transaminases abnormal [Recovering/Resolving]
